FAERS Safety Report 4899638-7 (Version None)
Quarter: 2006Q1

REPORT INFORMATION
  Report Type: 
  Country: None (occurrence: None)
  Receive Date: 20060202
  Receipt Date: 20060126
  Transmission Date: 20060701
  Serious: Yes (Other)
  Sender: FDA-Public Use
  Company Number: GB-MERCK-0601GBR00142

PATIENT
  Age: 49 Year
  Sex: Male
  Weight: 83 kg

DRUGS (5)
  1. COZAAR [Suspect]
     Indication: LEFT VENTRICULAR FAILURE
     Route: 048
     Dates: start: 20020101, end: 20050116
  2. WARFARIN [Concomitant]
     Indication: ATRIAL FIBRILLATION
     Route: 048
  3. LOPERAMIDE HYDROCHLORIDE [Concomitant]
     Route: 048
  4. ALBUTEROL [Concomitant]
     Route: 055
     Dates: start: 20050906
  5. BECLOMETHASONE DIPROPIONATE [Concomitant]
     Route: 055
     Dates: start: 20050825

REACTIONS (2)
  - AURICULAR SWELLING [None]
  - SWELLING FACE [None]
